FAERS Safety Report 4324886-4 (Version None)
Quarter: 2004Q1

REPORT INFORMATION
  Report Type: 
  Country: None (occurrence: None)
  Receive Date: 20040325
  Receipt Date: 20040325
  Transmission Date: 20041129
  Serious: Yes (Hospitalization)
  Sender: FDA-Public Use
  Company Number: None

PATIENT
  Age: 82 Year
  Sex: Female
  Weight: 43.9989 kg

DRUGS (8)
  1. DILANTIN [Suspect]
     Indication: CONVULSION
     Dosage: DAILY PO
     Route: 048
     Dates: start: 20030815, end: 20040319
  2. DIZAEPAM [Concomitant]
  3. LEXAPRO [Concomitant]
  4. TRAZODONE HCL [Concomitant]
  5. VITAMIN D [Concomitant]
  6. TUMS [Concomitant]
  7. DOCUSATE CAL [Concomitant]
  8. MULTI-VITAMIN [Concomitant]

REACTIONS (4)
  - CONDITION AGGRAVATED [None]
  - CONVULSION [None]
  - DRUG LEVEL BELOW THERAPEUTIC [None]
  - PHARMACEUTICAL PRODUCT COMPLAINT [None]
